FAERS Safety Report 15253278 (Version 2)
Quarter: 2018Q3

REPORT INFORMATION
  Report Type: Spontaneous
  Country: NL (occurrence: NL)
  Receive Date: 20180807
  Receipt Date: 20180822
  Transmission Date: 20181010
  Serious: Yes (Other)
  Sender: FDA-Public Use
  Company Number: PHHY2018NL059864

PATIENT
  Age: 50 Year
  Sex: Male

DRUGS (3)
  1. BETAMETHASONE. [Suspect]
     Active Substance: BETAMETHASONE
     Indication: DERMATITIS ATOPIC
     Dosage: UNK (1?2 TIMES DAILY WITH A MEAN AMOUNT OF 150 G/WEEK)
     Route: 061
  2. DUPILUMAB [Concomitant]
     Active Substance: DUPILUMAB
     Indication: DERMATITIS ATOPIC
     Dosage: 300 MG, QW
     Route: 065
  3. FLUOXETINE [Concomitant]
     Active Substance: FLUOXETINE HYDROCHLORIDE
     Indication: PANIC ATTACK
     Dosage: 40 MG, QD
     Route: 065

REACTIONS (7)
  - Hypothalamic pituitary adrenal axis suppression [Recovered/Resolved]
  - Influenza like illness [Unknown]
  - Adrenal insufficiency [Recovered/Resolved]
  - Arthralgia [Unknown]
  - Myalgia [Unknown]
  - Decreased appetite [Unknown]
  - Fatigue [Unknown]
